FAERS Safety Report 25328527 (Version 1)
Quarter: 2025Q2

REPORT INFORMATION
  Report Type: Spontaneous
  Country: US (occurrence: US)
  Receive Date: 20250519
  Receipt Date: 20250519
  Transmission Date: 20250717
  Serious: Yes (Hospitalization)
  Sender: ALEXION PHARMACEUTICALS
  Company Number: US-AstraZeneca-CH-00870330A

PATIENT

DRUGS (1)
  1. LYNPARZA [Suspect]
     Active Substance: OLAPARIB
     Route: 065

REACTIONS (4)
  - Haemorrhage [Unknown]
  - Mouth haemorrhage [Unknown]
  - Tongue haemorrhage [Unknown]
  - Gingival bleeding [Unknown]
